FAERS Safety Report 11641322 (Version 2)
Quarter: 2015Q4

REPORT INFORMATION
  Report Type: Spontaneous
  Country: US (occurrence: US)
  Receive Date: 20151019
  Receipt Date: 20151019
  Transmission Date: 20160304
  Serious: Yes (Other)
  Sender: FDA-Public Use
  Company Number: US-AKORN PHARMACEUTICALS-2015AKN00571

PATIENT
  Age: 68 Year
  Sex: Female
  Weight: 63.2 kg

DRUGS (5)
  1. ANTI-THYMOCYTE GLOBULIN (RABBIT) NOS [Suspect]
     Active Substance: LAPINE T-LYMPHOCYTE IMMUNE GLOBULIN
     Indication: IMMUNOSUPPRESSION
     Dosage: 1.5 MG/KG, 1X/DAY
     Route: 065
  2. CELLCEPT [Concomitant]
     Active Substance: MYCOPHENOLATE MOFETIL\MYCOPHENOLATE MOFETIL HYDROCHLORIDE
     Dosage: 1500 MG, 2X/DAY
     Route: 048
  3. STEROID TAPER [Concomitant]
     Dosage: UNK
  4. TRANEXAMIC ACID. [Suspect]
     Active Substance: TRANEXAMIC ACID
     Indication: PROCOAGULANT THERAPY
  5. BELATACEPT [Concomitant]
     Active Substance: BELATACEPT

REACTIONS (4)
  - Haemolytic anaemia [Recovered/Resolved]
  - Thrombotic microangiopathy [Recovered/Resolved]
  - Complications of transplanted kidney [Recovered/Resolved]
  - Thrombocytopenia [Recovered/Resolved]
